FAERS Safety Report 13829342 (Version 3)
Quarter: 2017Q3

REPORT INFORMATION
  Report Type: Spontaneous
  Country: US (occurrence: US)
  Receive Date: 20170803
  Receipt Date: 20170831
  Transmission Date: 20171127
  Serious: Yes (Hospitalization, Other)
  Sender: FDA-Public Use
  Company Number: US-PFIZER INC-2017332778

PATIENT
  Age: 46 Year
  Sex: Male
  Weight: 91 kg

DRUGS (1)
  1. GENOTROPIN [Suspect]
     Active Substance: SOMATROPIN
     Indication: IMMUNE SYSTEM DISORDER
     Dosage: 1 MG, 1X/DAY (AT NIGHT, STOMACH, INJECTION)
     Dates: start: 2006

REACTIONS (2)
  - Product use in unapproved indication [Unknown]
  - Coronary artery occlusion [Recovering/Resolving]

NARRATIVE: CASE EVENT DATE: 2006
